FAERS Safety Report 21708545 (Version 1)
Quarter: 2022Q4

REPORT INFORMATION
  Report Type: Spontaneous
  Country: GB (occurrence: GB)
  Receive Date: 20221210
  Receipt Date: 20221210
  Transmission Date: 20230113
  Serious: Yes (Death, Other)
  Sender: FDA-Public Use
  Company Number: GB-AMGEN-GBRSP2022210624

PATIENT
  Sex: Female

DRUGS (3)
  1. ARANESP [Suspect]
     Active Substance: DARBEPOETIN ALFA
     Indication: Product used for unknown indication
     Dosage: 100 MICROGRAM, Q4WK
     Route: 065
  2. ARANESP [Suspect]
     Active Substance: DARBEPOETIN ALFA
     Dosage: 100 MICROGRAM, Q4WK
     Route: 065
  3. ARANESP [Suspect]
     Active Substance: DARBEPOETIN ALFA
     Dosage: 100 MICROGRAM, Q4WK
     Route: 065

REACTIONS (1)
  - Death [Fatal]
